FAERS Safety Report 9154452 (Version 1)
Quarter: 2013Q1

REPORT INFORMATION
  Report Type: Spontaneous
  Country: US (occurrence: US)
  Receive Date: 20130311
  Receipt Date: 20130311
  Transmission Date: 20140127
  Serious: Yes (Other)
  Sender: FDA-Public Use
  Company Number: US-ABBOTT-12P-163-0963644-00

PATIENT
  Sex: Female
  Weight: 29.96 kg

DRUGS (1)
  1. LUPRON DEPOT 11.25 MG [Suspect]
     Indication: PRECOCIOUS PUBERTY
     Route: 030
     Dates: start: 20110504, end: 201204

REACTIONS (4)
  - Injection site abscess [Recovered/Resolved]
  - Injection site erythema [Recovered/Resolved]
  - Injection site swelling [Recovered/Resolved]
  - Injection site pain [Recovered/Resolved]
